FAERS Safety Report 6847518-X (Version None)
Quarter: 2010Q3

REPORT INFORMATION
  Report Type: 
  Country: None (occurrence: None)
  Receive Date: 20100716
  Receipt Date: 20100713
  Transmission Date: 20110219
  Serious: Yes (Other)
  Sender: FDA-Public Use
  Company Number: US-PFIZER INC-2010087768

PATIENT
  Sex: Female
  Weight: 68.038 kg

DRUGS (8)
  1. CELEBREX [Suspect]
     Indication: ARTHRALGIA
     Dosage: 200 MG, 1X/DAY
     Dates: end: 20100706
  2. LYRICA [Suspect]
     Indication: ARTHRALGIA
     Dosage: UNK
     Dates: start: 20100701
  3. HYDROCHLOROTHIAZIDE [Concomitant]
     Indication: HYPERTENSION
     Dosage: 12.5 MG, 1X/DAY
  4. SYNTHROID [Concomitant]
     Dosage: 0.75 MG, 1X/DAY
  5. ACEBUTOLOL [Concomitant]
     Indication: CARDIAC FLUTTER
     Dosage: 400 MG, 1X/DAY
  6. VITAMINS NOS [Concomitant]
     Dosage: UNK
  7. CALCIUM [Concomitant]
     Dosage: UNK
  8. PROZAC [Concomitant]
     Indication: DEPRESSION
     Dosage: 20 MG, UNK

REACTIONS (5)
  - BLOOD CREATININE INCREASED [None]
  - CONSTIPATION [None]
  - EUPHORIC MOOD [None]
  - EYE SWELLING [None]
  - MENTAL IMPAIRMENT [None]
